FAERS Safety Report 7306545-9 (Version None)
Quarter: 2011Q1

REPORT INFORMATION
  Report Type: 
  Country: None (occurrence: None)
  Receive Date: 20110222
  Receipt Date: 20110218
  Transmission Date: 20110831
  Serious: Yes (Death)
  Sender: FDA-Public Use
  Company Number: US-PFIZER INC-2011036489

PATIENT
  Age: 46 Year
  Sex: Female

DRUGS (6)
  1. HYDROMORPHONE [Suspect]
     Dosage: UNK
  2. ACETAMINOPHEN [Suspect]
     Dosage: UNK
  3. ALPRAZOLAM [Suspect]
     Dosage: UNK
  4. MORPHINE [Suspect]
     Dosage: UNK
  5. OXYCODONE [Suspect]
     Dosage: UNK
  6. HYDROCODONE [Suspect]
     Dosage: UNK

REACTIONS (1)
  - TOXICITY TO VARIOUS AGENTS [None]
